FAERS Safety Report 20093322 (Version 2)
Quarter: 2022Q1

REPORT INFORMATION
  Report Type: Report from Study
  Country: DO (occurrence: DO)
  Receive Date: 20211120
  Receipt Date: 20220131
  Transmission Date: 20220423
  Serious: Yes (Other)
  Sender: FDA-Public Use
  Company Number: DO-NOVARTISPH-NVSC2021DO260520

PATIENT
  Age: 59 Year
  Sex: Male

DRUGS (2)
  1. SECUKINUMAB [Suspect]
     Active Substance: SECUKINUMAB
     Indication: Ankylosing spondylitis
     Dosage: 150 MG, QMO (STARTED 22 DAYS AGO APPROXIMATELY)
     Route: 065
  2. SECUKINUMAB [Suspect]
     Active Substance: SECUKINUMAB
     Dosage: 150 MG, QMO
     Route: 058
     Dates: start: 20211012, end: 2021

REACTIONS (7)
  - Gait disturbance [Unknown]
  - Femur fracture [Not Recovered/Not Resolved]
  - Neck pain [Unknown]
  - Movement disorder [Unknown]
  - Back pain [Unknown]
  - Pain in extremity [Unknown]
  - Product availability issue [Unknown]

NARRATIVE: CASE EVENT DATE: 20211101
